FAERS Safety Report 11619949 (Version 4)
Quarter: 2015Q4

REPORT INFORMATION
  Report Type: Spontaneous
  Country: US (occurrence: US)
  Receive Date: 20151012
  Receipt Date: 20151127
  Transmission Date: 20160304
  Serious: No
  Sender: FDA-Public Use
  Company Number: US-PFIZER INC-2015339623

PATIENT
  Age: 79 Year
  Sex: Female
  Weight: 59 kg

DRUGS (8)
  1. VIBRAMYCIN [Suspect]
     Active Substance: DOXYCYCLINE
     Indication: GINGIVAL DISORDER
  2. SIMVASTATIN. [Concomitant]
     Active Substance: SIMVASTATIN
     Indication: BLOOD CHOLESTEROL
     Dosage: 10 MG, 1X/DAY
  3. POTASSIUM CITRATE. [Concomitant]
     Active Substance: POTASSIUM CITRATE
     Indication: RENAL LITHIASIS PROPHYLAXIS
     Dosage: 1080 MG, ALTERNATE DAY (ONE EVERY OTHER)
  4. VIBRAMYCIN [Suspect]
     Active Substance: DOXYCYCLINE
     Indication: GINGIVITIS
     Dosage: UNK UNK, DAILY (1-2 DROPS IN MOUTH)
     Route: 048
  5. VIBRAMYCIN [Suspect]
     Active Substance: DOXYCYCLINE
     Indication: TOOTH DISORDER
  6. VIBRAMYCIN [Suspect]
     Active Substance: DOXYCYCLINE
     Indication: PERIODONTAL DISEASE
  7. AMLODIPINE BESYLATE. [Concomitant]
     Active Substance: AMLODIPINE BESYLATE
     Indication: BLOOD PRESSURE ABNORMAL
     Dosage: 5 MG, 1X/DAY
  8. TERAZOSIN [Concomitant]
     Active Substance: TERAZOSIN\TERAZOSIN HYDROCHLORIDE
     Indication: BLOOD PRESSURE ABNORMAL
     Dosage: 2 MG, 1X/DAY

REACTIONS (1)
  - Product use issue [Unknown]
